FAERS Safety Report 5086527-0 (Version None)
Quarter: 2006Q3

REPORT INFORMATION
  Report Type: 
  Country: None (occurrence: None)
  Receive Date: 20060821
  Receipt Date: 20060821
  Transmission Date: 20061208
  Serious: Yes (Other)
  Sender: FDA-Public Use
  Company Number: None

PATIENT
  Sex: Female
  Weight: 56.6996 kg

DRUGS (2)
  1. FENTANYL [Suspect]
     Indication: BONE PAIN
     Dosage: 1 PATCH 50 MCG/HR   EVERY 48 HRS.
     Route: 062
     Dates: start: 20050901, end: 20060310
  2. FENTANYL [Suspect]
     Indication: POST PROCEDURAL COMPLICATION
     Dosage: 1 PATCH 50 MCG/HR   EVERY 48 HRS.
     Route: 062
     Dates: start: 20050901, end: 20060310

REACTIONS (3)
  - CIRCUMSTANCE OR INFORMATION CAPABLE OF LEADING TO MEDICATION ERROR [None]
  - PHARMACEUTICAL PRODUCT COMPLAINT [None]
  - RASH [None]
